FAERS Safety Report 8996012 (Version 1)
Quarter: 2013Q1

REPORT INFORMATION
  Report Type: Spontaneous
  Country: US (occurrence: US)
  Receive Date: 20130103
  Receipt Date: 20130103
  Transmission Date: 20140127
  Serious: No
  Sender: FDA-Public Use
  Company Number: US-ABBOTT-12P-163-0938787-00

PATIENT
  Sex: Female

DRUGS (7)
  1. SYNTHROID [Suspect]
     Indication: PRODUCT USED FOR UNKNOWN INDICATION
  2. CYMBALTA [Suspect]
     Indication: PRODUCT USED FOR UNKNOWN INDICATION
  3. CLARINEX [Suspect]
     Indication: SINUSITIS
     Dates: start: 2011
  4. LYRICA [Suspect]
     Indication: PRODUCT USED FOR UNKNOWN INDICATION
  5. ALLEGRA [Suspect]
     Indication: PRODUCT USED FOR UNKNOWN INDICATION
  6. SPIRIVA [Suspect]
     Indication: PRODUCT USED FOR UNKNOWN INDICATION
  7. PROVENTIL [Suspect]
     Indication: PRODUCT USED FOR UNKNOWN INDICATION
     Dosage: INHALER
     Route: 055

REACTIONS (3)
  - Mouth ulceration [Not Recovered/Not Resolved]
  - Swollen tongue [Not Recovered/Not Resolved]
  - Mouth ulceration [Not Recovered/Not Resolved]
